FAERS Safety Report 9140684 (Version 2)
Quarter: 2013Q1

REPORT INFORMATION
  Report Type: Spontaneous
  Country: JP (occurrence: JP)
  Receive Date: 20130305
  Receipt Date: 20130314
  Transmission Date: 20140127
  Serious: Yes (Other)
  Sender: FDA-Public Use
  Company Number: JP-GLAXOSMITHKLINE-B0871561A

PATIENT
  Age: 22 Year
  Sex: Male

DRUGS (2)
  1. ZOVIRAX [Suspect]
     Indication: MENINGITIS VIRAL
     Route: 065
  2. CEFTRIAXONE SODIUM [Concomitant]
     Dosage: 2G PER DAY
     Route: 042

REACTIONS (8)
  - Disorientation [Recovering/Resolving]
  - Pyrexia [Recovering/Resolving]
  - Abdominal pain [Unknown]
  - Appendicitis [Unknown]
  - Renal impairment [Unknown]
  - Disorientation [Recovering/Resolving]
  - Altered state of consciousness [Unknown]
  - Encephalopathy [Recovering/Resolving]
